FAERS Safety Report 22166993 (Version 1)
Quarter: 2023Q2

REPORT INFORMATION
  Report Type: Spontaneous
  Country: US (occurrence: None)
  Receive Date: 20230402
  Receipt Date: 20230402
  Transmission Date: 20230722
  Serious: Yes (Disabling)
  Sender: FDA-Public Use
  Company Number: None

PATIENT
  Age: 33 Year
  Sex: Female
  Weight: 69.75 kg

DRUGS (1)
  1. CIPRO [Suspect]
     Active Substance: CIPROFLOXACIN HYDROCHLORIDE
     Indication: Urinary tract infection
     Dosage: OTHER QUANTITY : 10 TABLET(S);?FREQUENCY : EVERY 12 HOURS;?
     Route: 048
     Dates: start: 20230214, end: 20230218

REACTIONS (19)
  - Documented hypersensitivity to administered product [None]
  - Arthralgia [None]
  - Feeling cold [None]
  - Paraesthesia [None]
  - Pain in extremity [None]
  - Tendon pain [None]
  - Arthralgia [None]
  - Gait inability [None]
  - Burning sensation [None]
  - Burning sensation [None]
  - Vomiting [None]
  - Insomnia [None]
  - Impaired work ability [None]
  - Neuralgia [None]
  - Paraesthesia [None]
  - Arthralgia [None]
  - Tendon pain [None]
  - Skin infection [None]
  - Immune system disorder [None]

NARRATIVE: CASE EVENT DATE: 20230214
